FAERS Safety Report 7083322-8 (Version None)
Quarter: 2010Q4

REPORT INFORMATION
  Report Type: 
  Country: None (occurrence: None)
  Receive Date: 20101104
  Receipt Date: 20101028
  Transmission Date: 20110411
  Serious: Yes (Hospitalization, Other)
  Sender: FDA-Public Use
  Company Number: PHHY2009CA31024

PATIENT
  Sex: Male

DRUGS (7)
  1. EXJADE [Suspect]
     Indication: MYELOFIBROSIS
     Dosage: 1250 MG, UNK
     Route: 048
     Dates: start: 20090603
  2. EXJADE [Suspect]
     Dosage: 1125 MG, QD
     Route: 048
  3. HYDROXYUREA [Concomitant]
     Dosage: 500 MG, QD
     Route: 065
  4. METFORMIN [Concomitant]
     Dosage: 500 MG, QD
     Route: 048
  5. ACETAMINOPHEN [Concomitant]
  6. STOOL SOFTENER [Concomitant]
  7. WATER PILLS [Concomitant]

REACTIONS (12)
  - ASTHENIA [None]
  - DIZZINESS [None]
  - DYSPNOEA [None]
  - EMPYEMA [None]
  - FALL [None]
  - GASTROINTESTINAL HYPOMOTILITY [None]
  - LUNG INFECTION [None]
  - MALAISE [None]
  - PLATELET COUNT INCREASED [None]
  - PULMONARY OEDEMA [None]
  - PURULENT DISCHARGE [None]
  - WHITE BLOOD CELL COUNT INCREASED [None]
